FAERS Safety Report 24383425 (Version 1)
Quarter: 2024Q4

REPORT INFORMATION
  Report Type: Spontaneous
  Country: GB (occurrence: GB)
  Receive Date: 20241001
  Receipt Date: 20241001
  Transmission Date: 20250115
  Serious: Yes (Other)
  Sender: ALIMERA
  Company Number: GB-ALIMERA SCIENCES INC.-GB-A16013-24-000567

PATIENT

DRUGS (1)
  1. ILUVIEN [Suspect]
     Active Substance: FLUOCINOLONE ACETONIDE
     Indication: Product used for unknown indication
     Dosage: 0.25 MICROGRAM, QD -UNKNOWN EYE
     Route: 031

REACTIONS (2)
  - Blindness [Unknown]
  - Glaucoma [Unknown]
